FAERS Safety Report 4699153-X (Version None)
Quarter: 2005Q2

REPORT INFORMATION
  Report Type: 
  Country: None (occurrence: None)
  Receive Date: 20050623
  Receipt Date: 20050623
  Transmission Date: 20051028
  Serious: Yes (Hospitalization, Other)
  Sender: FDA-Public Use
  Company Number: None

PATIENT
  Age: 46 Year
  Sex: Male
  Weight: 65.7716 kg

DRUGS (5)
  1. EPZICOM [Suspect]
     Indication: HIV INFECTION
     Dosage: 600MG/300MG PO QD
     Route: 048
     Dates: start: 20050614, end: 20050620
  2. ATAZANAVIR [Concomitant]
  3. RITONAVIR [Concomitant]
  4. BACTRIM DS [Concomitant]
  5. DAPSONE [Concomitant]

REACTIONS (9)
  - DRUG HYPERSENSITIVITY [None]
  - DYSPNOEA [None]
  - FACE OEDEMA [None]
  - FATIGUE [None]
  - NAUSEA [None]
  - PYREXIA [None]
  - STOMATITIS [None]
  - TACHYCARDIA [None]
  - VOMITING [None]
